FAERS Safety Report 7825148-0 (Version None)
Quarter: 2011Q4

REPORT INFORMATION
  Report Type: 
  Country: None (occurrence: None)
  Receive Date: 20111019
  Receipt Date: 20111010
  Transmission Date: 20120403
  Serious: Yes (Hospitalization)
  Sender: FDA-Public Use
  Company Number: US-JNJFOC-20111001055

PATIENT
  Sex: Male
  Weight: 62.6 kg

DRUGS (4)
  1. INFLIXIMAB, RECOMBINANT [Suspect]
     Indication: INFLAMMATORY BOWEL DISEASE
     Route: 042
     Dates: start: 20080830, end: 20090814
  2. ADALIMUMAB [Concomitant]
     Dates: start: 20110827
  3. ADALIMUMAB [Concomitant]
     Dates: start: 20091130
  4. ADALIMUMAB [Concomitant]
     Dates: start: 20110521

REACTIONS (1)
  - CROHN'S DISEASE [None]
